FAERS Safety Report 4689195-2 (Version None)
Quarter: 2005Q2

REPORT INFORMATION
  Report Type: 
  Country: None (occurrence: None)
  Receive Date: 20050608
  Receipt Date: 20050303
  Transmission Date: 20051028
  Serious: No
  Sender: FDA-Public Use
  Company Number: 2005-BP-03358BP

PATIENT
  Sex: Female

DRUGS (6)
  1. SPIRIVA [Suspect]
     Indication: ASTHMA
     Dosage: 18 MCG (18 MCG, QD), IH
     Route: 055
     Dates: start: 20050301
  2. PROVENTIL (SALBUTAMOL SULFATE) [Concomitant]
  3. ADVAIR DISKUS 100/50 [Concomitant]
  4. SINGULAIR (MONTELUKAST) [Concomitant]
  5. AVELOX [Concomitant]
  6. TRI-EST [Concomitant]

REACTIONS (2)
  - NAUSEA [None]
  - TENSION [None]
